FAERS Safety Report 24690870 (Version 1)
Quarter: 2024Q4

REPORT INFORMATION
  Report Type: Spontaneous
  Country: DE (occurrence: DE)
  Receive Date: 20241203
  Receipt Date: 20241203
  Transmission Date: 20250114
  Serious: Yes (Other)
  Sender: ASCEND THERAPEUTICS US, LLC
  Company Number: DE-Ascend Therapeutics US, LLC-2166385

PATIENT
  Age: 71 Year
  Sex: Female

DRUGS (3)
  1. ESTROGEL [Suspect]
     Active Substance: ESTRADIOL
     Indication: Product used for unknown indication
  2. UTROGESTAN [Suspect]
     Active Substance: PROGESTERONE
     Dates: end: 2023
  3. ESTRADIOL [Suspect]
     Active Substance: ESTRADIOL

REACTIONS (4)
  - Polyarthritis [Unknown]
  - Inappropriate schedule of product administration [Unknown]
  - Hot flush [Unknown]
  - Osteoporosis [Unknown]
